FAERS Safety Report 8258398-2 (Version None)
Quarter: 2012Q2

REPORT INFORMATION
  Report Type: 
  Country: None (occurrence: None)
  Receive Date: 20120404
  Receipt Date: 20120326
  Transmission Date: 20120825
  Serious: Yes (Death)
  Sender: FDA-Public Use
  Company Number: JP-NOVOPROD-348225

PATIENT
  Age: 63 Year
  Sex: Male

DRUGS (2)
  1. VICTOZA [Suspect]
     Indication: DIABETES MELLITUS
     Dosage: 0.9 MG, QD
     Route: 058
  2. GLIMICRON [Concomitant]

REACTIONS (2)
  - CARDIAC HYPERTROPHY [None]
  - HYPERTENSIVE CARDIOMEGALY [None]
